FAERS Safety Report 10195905 (Version 2)
Quarter: 2014Q2

REPORT INFORMATION
  Report Type: Spontaneous
  Country: JP (occurrence: JP)
  Receive Date: 20140527
  Receipt Date: 20140527
  Transmission Date: 20141212
  Serious: Yes (Other)
  Sender: FDA-Public Use
  Company Number: JP-AMGEN-JPNSP2014025623

PATIENT
  Age: 89 Year
  Sex: Female
  Weight: 33 kg

DRUGS (11)
  1. PRALIA [Suspect]
     Indication: PRODUCT USED FOR UNKNOWN INDICATION
     Dosage: 60MG, SINGLE
     Route: 058
     Dates: start: 20140305
  2. PRALIA SUBCUTANEOUS INJECTION 60MG SYRINGE [Suspect]
     Indication: OSTEOPOROSIS
     Dosage: 60MG, SINGLE
     Route: 065
     Dates: start: 20140305, end: 20140305
  3. WARFARIN POTASSIUM [Concomitant]
     Indication: ATRIAL FIBRILLATION
     Dosage: 0.8 G, QD
     Route: 048
  4. MEVALOTIN TABLET 5MG [Concomitant]
     Dosage: 5 MG, QD
     Route: 048
  5. SUNRYTHM CAPSULES 25MG [Concomitant]
     Dosage: 25 MG, BID
     Route: 048
  6. SIGMART [Concomitant]
     Dosage: 5 MG, BID
     Route: 048
  7. FERROMIA                           /00023516/ [Concomitant]
     Dosage: 50 MG, QD
     Route: 048
  8. PARIET [Concomitant]
     Dosage: 10 MG, QD
     Route: 048
  9. EDIROL [Suspect]
     Indication: HYPERCALCAEMIA
     Dosage: UNK
     Route: 065
  10. CALCIUM COMPOUNDS AND PREPARATIONS [Suspect]
     Indication: HYPERCALCAEMIA
     Dosage: UNK
     Route: 065
  11. CALCIUM COMPOUNDS AND PREPARATIONS [Suspect]
     Dosage: UNK
     Route: 065

REACTIONS (4)
  - Hypertension [Recovering/Resolving]
  - Atrial fibrillation [Recovered/Resolved]
  - Hypercalcaemia [Recovered/Resolved]
  - Chest discomfort [None]
